FAERS Safety Report 16371943 (Version 1)
Quarter: 2019Q2

REPORT INFORMATION
  Report Type: Spontaneous
  Country: JP (occurrence: JP)
  Receive Date: 20190530
  Receipt Date: 20190530
  Transmission Date: 20190711
  Serious: Yes (Death, Other)
  Sender: FDA-Public Use
  Company Number: JP-AMGEN-JPNSP2019084798

PATIENT

DRUGS (4)
  1. MITOXANTRONE HYDROCHLORIDE. [Suspect]
     Active Substance: MITOXANTRONE HYDROCHLORIDE
     Indication: ACUTE MYELOID LEUKAEMIA
     Dosage: 10 MILLIGRAM/SQ. METER (30MIN DIV, 72HR, 96HR, 120HR)
     Route: 041
  2. FLUDARABINE PHOSPHATE. [Suspect]
     Active Substance: FLUDARABINE PHOSPHATE
     Indication: ACUTE MYELOID LEUKAEMIA
     Dosage: 15 MILLIGRAM/SQ. METER (DIV, 20HR, 32HR, 44HR, 56HR, 68HR, 80HR, 92HR, 104HR)
     Route: 041
  3. GRAN [Suspect]
     Active Substance: FILGRASTIM
     Indication: ACUTE MYELOID LEUKAEMIA
     Dosage: 300 MICROGRAM/SQ. METER (SC, 0HR, 24HR, 48HR, 72HR)
     Route: 058
  4. CYTARABINE. [Suspect]
     Active Substance: CYTARABINE
     Indication: ACUTE MYELOID LEUKAEMIA
     Dosage: 2 GRAM PER SQUARE METRE (3HR DIV, 24HR, 36HR, 48HR, 60HR, 72HR, 84HR, 96HR, 108HR)
     Route: 041

REACTIONS (31)
  - Streptococcal sepsis [Recovered/Resolved]
  - Bronchopulmonary aspergillosis [Recovered/Resolved]
  - Disseminated intravascular coagulation [Unknown]
  - Stomatitis [Unknown]
  - Stomatococcal infection [Recovered/Resolved]
  - Adverse event [Unknown]
  - Rash [Unknown]
  - Stenotrophomonas infection [Fatal]
  - Enterococcal sepsis [Recovered/Resolved]
  - Anal abscess [Unknown]
  - Infection [Unknown]
  - Leukopenia [Recovered/Resolved]
  - Pneumonia [Recovered/Resolved]
  - Aspartate aminotransferase increased [Unknown]
  - Nausea [Unknown]
  - Diarrhoea [Unknown]
  - Staphylococcal sepsis [Recovered/Resolved]
  - Seizure [Unknown]
  - Febrile neutropenia [Recovered/Resolved]
  - Candida sepsis [Recovered/Resolved]
  - Thrombocytopenia [Recovered/Resolved]
  - Blood bilirubin increased [Unknown]
  - Pulmonary haemorrhage [Fatal]
  - Pseudomonal sepsis [Recovered/Resolved]
  - Appendicitis [Recovered/Resolved]
  - Proteinuria [Unknown]
  - Vomiting [Unknown]
  - Sepsis [Recovered/Resolved]
  - Creatinine urine increased [Unknown]
  - Alanine aminotransferase increased [Unknown]
  - Pyrexia [Unknown]
